FAERS Safety Report 15656569 (Version 1)
Quarter: 2018Q4

REPORT INFORMATION
  Report Type: Spontaneous
  Country: US (occurrence: US)
  Receive Date: 20181126
  Receipt Date: 20181126
  Transmission Date: 20190205
  Serious: Yes (Hospitalization, Other)
  Sender: FDA-Public Use
  Company Number: US-SA-2018SA316404

PATIENT
  Age: 50 Year
  Sex: Male

DRUGS (30)
  1. OXYCODONE [Concomitant]
     Active Substance: OXYCODONE
     Dosage: 10 MG, Q4H
     Route: 048
  2. GLUCOSE [Concomitant]
     Active Substance: DEXTROSE
     Dosage: 30 G, AS INDICATED
     Route: 048
  3. POLYETHYLENE GLYCOL 3350. [Concomitant]
     Active Substance: POLYETHYLENE GLYCOL 3350
     Dosage: 17 G, QD
     Route: 048
  4. AMOXICILLIN;CLAVULANATE POTASSIUM [Concomitant]
     Dosage: 1 DF, BID
     Route: 048
  5. CLONIDINE. [Concomitant]
     Active Substance: CLONIDINE
     Dosage: 1 DF, Q4H
     Route: 048
  6. INSULIN DETEMIR [Concomitant]
     Active Substance: INSULIN DETEMIR
     Dosage: 8 UNITS 0.08 ML, QD
     Route: 058
  7. ACETAMINOPHEN. [Concomitant]
     Active Substance: ACETAMINOPHEN
     Dosage: 2 DF, Q4H
     Route: 048
  8. DEXTROSE. [Concomitant]
     Active Substance: DEXTROSE
     Dosage: 25 GM 25 ML, AS INDICATED
     Route: 042
  9. ZOLPIDEM [Concomitant]
     Active Substance: ZOLPIDEM\ZOLPIDEM TARTRATE
     Dosage: 1 DF, QH
     Route: 048
  10. MUPIROCIN. [Concomitant]
     Active Substance: MUPIROCIN
     Dosage: 1 APP, QD
     Route: 061
  11. CLONIDINE. [Concomitant]
     Active Substance: CLONIDINE
     Dosage: 1 DF, BID
     Route: 048
  12. MORPHINE [Concomitant]
     Active Substance: MORPHINE
     Dosage: 1 DF, Q12H
     Route: 048
  13. OXYCODONE [Concomitant]
     Active Substance: OXYCODONE
     Dosage: UNK UNK, QD
  14. DEXTROSE. [Concomitant]
     Active Substance: DEXTROSE
     Dosage: 25 GM 25 ML, AS INDICATED
     Route: 042
  15. GLUCOSE [Concomitant]
     Active Substance: DEXTROSE
     Dosage: 15 G, AS INDICATED
     Route: 048
  16. INSULIN ASPART [Concomitant]
     Active Substance: INSULIN ASPART
     Dosage: 100 UNITS/ML, MEDIUM DOSE, QIDACHS
     Route: 058
  17. GABAPENTIN. [Concomitant]
     Active Substance: GABAPENTIN
     Dosage: 1 DF, TID
     Route: 048
  18. RANITIDINE. [Concomitant]
     Active Substance: RANITIDINE
     Dosage: 1 DF, BID
     Route: 048
  19. SODIUM POLYSTYRENE SULFONATE. [Concomitant]
     Active Substance: SODIUM POLYSTYRENE SULFONATE
     Dosage: 15 G/60 ML, QD
     Route: 048
  20. DEXTROSE. [Concomitant]
     Active Substance: DEXTROSE
     Dosage: 12.5 GM 25 ML, AS INDICATED
     Route: 042
  21. DEXTROSE. [Concomitant]
     Active Substance: DEXTROSE
     Dosage: 12.5 GM 25 ML, AS INDICATED
     Route: 042
  22. DULCOLAX NOS [Suspect]
     Active Substance: BISACODYL OR DOCUSATE SODIUM
     Dosage: 10 MG
     Route: 054
  23. HYDROCHLOROTHIAZIDE. [Concomitant]
     Active Substance: HYDROCHLOROTHIAZIDE
     Dosage: 1 DF, QD
     Route: 048
  24. LISINOPRIL. [Concomitant]
     Active Substance: LISINOPRIL
     Dosage: 2 DF, QD
     Route: 048
  25. GLUCOSE [Concomitant]
     Active Substance: DEXTROSE
     Dosage: 15 G, AS INDICATED
     Route: 048
  26. DOCUSATE SODIUM. [Concomitant]
     Active Substance: DOCUSATE SODIUM
     Dosage: 1 DF, BID
     Route: 048
  27. DULOXETINE. [Concomitant]
     Active Substance: DULOXETINE
     Dosage: 2 DF, QD
     Route: 048
  28. HYDRALAZINE [Concomitant]
     Active Substance: HYDRALAZINE HYDROCHLORIDE
     Dosage: 1 DF, Q8H
     Route: 048
  29. ENOXAPARIN [Concomitant]
     Active Substance: ENOXAPARIN
     Dosage: 40MG/0.4ML, QD
     Route: 058
  30. GLUCAGON RECOMBINANT [Concomitant]
     Active Substance: GLUCAGON
     Dosage: 1 MG 1 EA, AS INDICATED
     Route: 030

REACTIONS (24)
  - Hepatitis C [Unknown]
  - Gait disturbance [Unknown]
  - Leg amputation [Unknown]
  - Foot fracture [Unknown]
  - Loss of personal independence in daily activities [Unknown]
  - Chest pain [Unknown]
  - Pain in extremity [Unknown]
  - Posture abnormal [Unknown]
  - Oedema [Unknown]
  - Staphylococcal sepsis [Unknown]
  - Type 1 diabetes mellitus [Unknown]
  - Debridement [Unknown]
  - Anaemia [Unknown]
  - Asthenia [Unknown]
  - Gangrene [Unknown]
  - Pain [Unknown]
  - Musculoskeletal stiffness [Unknown]
  - Peptic ulcer [Unknown]
  - Cellulitis [Unknown]
  - Hypertension [Unknown]
  - Limb injury [Unknown]
  - Hypokinesia [Unknown]
  - Mobility decreased [Unknown]
  - Decreased activity [Unknown]

NARRATIVE: CASE EVENT DATE: 20140409
